FAERS Safety Report 4626900-5 (Version None)
Quarter: 2005Q2

REPORT INFORMATION
  Report Type: 
  Country: None (occurrence: None)
  Receive Date: 20050405
  Receipt Date: 20050322
  Transmission Date: 20051028
  Serious: Yes (Death)
  Sender: FDA-Public Use
  Company Number: PHHO2005ZA04862

PATIENT
  Sex: Male

DRUGS (5)
  1. HYDROXYUREA [Concomitant]
  2. CYTARABINE [Concomitant]
  3. DAUNORUBICIN HCL [Concomitant]
  4. ETOPOSIDE [Concomitant]
  5. GLEEVEC [Suspect]
     Indication: BLAST CRISIS IN MYELOGENOUS LEUKAEMIA
     Dosage: 300 MG, QD
     Route: 048
     Dates: start: 20041011

REACTIONS (1)
  - KLEBSIELLA SEPSIS [None]
